FAERS Safety Report 17503623 (Version 1)
Quarter: 2020Q1

REPORT INFORMATION
  Report Type: Spontaneous
  Country: US (occurrence: US)
  Receive Date: 20200305
  Receipt Date: 20200305
  Transmission Date: 20200409
  Serious: Yes (Other)
  Sender: FDA-Public Use
  Company Number: US-GILEAD-2020-0453426

PATIENT
  Sex: Male

DRUGS (1)
  1. YESCARTA [Suspect]
     Active Substance: AXICABTAGENE CILOLEUCEL
     Indication: PRODUCT USED FOR UNKNOWN INDICATION
     Dosage: UNK; INFUSION
     Route: 065
     Dates: start: 202001, end: 202001

REACTIONS (4)
  - Bradycardia [Unknown]
  - Aphasia [Recovered/Resolved]
  - Nervous system disorder [Recovered/Resolved]
  - Thinking abnormal [Recovered/Resolved]
